FAERS Safety Report 14231634 (Version 1)
Quarter: 2017Q4

REPORT INFORMATION
  Report Type: Spontaneous
  Country: CN (occurrence: CN)
  Receive Date: 20171128
  Receipt Date: 20171128
  Transmission Date: 20180321
  Serious: Yes (Other)
  Sender: FDA-Public Use
  Company Number: CN-GLAXOSMITHKLINE-CN2017GSK175235

PATIENT
  Sex: Male
  Weight: 65 kg

DRUGS (1)
  1. HEPTODIN [Suspect]
     Active Substance: LAMIVUDINE
     Indication: HEPATITIS B
     Dosage: 100 MG, QD
     Route: 048
     Dates: end: 20171113

REACTIONS (5)
  - Hepatic cirrhosis [Unknown]
  - Pruritus generalised [Not Recovered/Not Resolved]
  - Suspected counterfeit product [Unknown]
  - Drug dose omission [Unknown]
  - Transaminases abnormal [Not Recovered/Not Resolved]

NARRATIVE: CASE EVENT DATE: 201711
